FAERS Safety Report 19968536 (Version 1)
Quarter: 2021Q4

REPORT INFORMATION
  Report Type: Spontaneous
  Country: US (occurrence: US)
  Receive Date: 20211019
  Receipt Date: 20211019
  Transmission Date: 20220303
  Serious: Yes (Hospitalization)
  Sender: FDA-Public Use
  Company Number: None

PATIENT
  Age: 84 Year
  Sex: Male

DRUGS (1)
  1. ABATACEPT [Suspect]
     Active Substance: ABATACEPT
     Indication: Rheumatoid arthritis
     Dosage: ?          OTHER FREQUENCY:MONTHLY;
     Route: 042
     Dates: start: 20201202

REACTIONS (3)
  - Headache [None]
  - Blood pressure increased [None]
  - Heart rate decreased [None]

NARRATIVE: CASE EVENT DATE: 20211006
